FAERS Safety Report 7035264-1 (Version None)
Quarter: 2010Q4

REPORT INFORMATION
  Report Type: 
  Country: None (occurrence: None)
  Receive Date: 20101008
  Receipt Date: 20101001
  Transmission Date: 20110411
  Serious: Yes (Death)
  Sender: FDA-Public Use
  Company Number: A0884493A

PATIENT
  Age: 73 Year
  Sex: Male

DRUGS (8)
  1. ZOFRAN [Suspect]
     Indication: VOMITING
     Dosage: 8MG THREE TIMES PER DAY
     Route: 048
     Dates: start: 20100901, end: 20100928
  2. METHYLDOPA [Concomitant]
  3. PHENERGAN [Concomitant]
  4. COLACE [Concomitant]
  5. TYLENOL [Concomitant]
  6. MOTRIN [Concomitant]
  7. MIRALAX [Concomitant]
  8. NISTATIN [Concomitant]

REACTIONS (1)
  - NEOPLASM [None]
